FAERS Safety Report 18313641 (Version 4)
Quarter: 2020Q4

REPORT INFORMATION
  Report Type: Report from Study
  Country: US (occurrence: US)
  Receive Date: 20200925
  Receipt Date: 20201111
  Transmission Date: 20210113
  Serious: Yes (Hospitalization, Disabling, Other)
  Sender: FDA-Public Use
  Company Number: US-JNJFOC-A-NJ2017-161945

PATIENT
  Age: 66 Year
  Sex: Female
  Weight: 82.63 kg

DRUGS (9)
  1. TRACLEER [Suspect]
     Active Substance: BOSENTAN
     Indication: PULMONARY HYPERTENSION
     Route: 048
     Dates: start: 2008
  2. VELETRI [Suspect]
     Active Substance: EPOPROSTENOL
     Dosage: 18.5 NG/KG, PER MIN
     Route: 042
     Dates: start: 2008
  3. TRACLEER [Suspect]
     Active Substance: BOSENTAN
     Route: 048
  4. VELETRI [Suspect]
     Active Substance: EPOPROSTENOL
     Route: 042
     Dates: start: 2008
  5. AMBRISENTAN [Concomitant]
     Active Substance: AMBRISENTAN
  6. VELETRI [Suspect]
     Active Substance: EPOPROSTENOL
     Indication: PULMONARY HYPERTENSION
     Route: 042
  7. VELETRI [Suspect]
     Active Substance: EPOPROSTENOL
     Dosage: 18.75 NG/KG, PER MIN
     Route: 042
  8. VELETRI [Suspect]
     Active Substance: EPOPROSTENOL
     Dosage: 20.25 NG/KG, PER MIN
     Route: 042
  9. REVATIO [Concomitant]
     Active Substance: SILDENAFIL CITRATE
     Dosage: 80 UNK, TID
     Dates: start: 2008

REACTIONS (24)
  - Primary biliary cholangitis [Not Recovered/Not Resolved]
  - Catheter site erythema [Unknown]
  - Pulmonary hypertension [Unknown]
  - Oxygen saturation decreased [Unknown]
  - Palpitations [Unknown]
  - Autoimmune disorder [Unknown]
  - Ascites [Not Recovered/Not Resolved]
  - Hypoxia [Unknown]
  - Fluid retention [Unknown]
  - Fluid overload [Unknown]
  - Pain in jaw [Unknown]
  - Pneumonia [Unknown]
  - Catheter site calcification [Unknown]
  - Internal haemorrhage [Unknown]
  - Dyspnoea [Unknown]
  - Catheter site swelling [Unknown]
  - Device dislocation [Unknown]
  - Gout [Unknown]
  - Liver disorder [Unknown]
  - Bronchitis [Unknown]
  - Catheter management [Unknown]
  - Back pain [Unknown]
  - Condition aggravated [Not Recovered/Not Resolved]
  - Dyspnoea exertional [Not Recovered/Not Resolved]

NARRATIVE: CASE EVENT DATE: 20171212
